FAERS Safety Report 13268907 (Version 1)
Quarter: 2017Q1

REPORT INFORMATION
  Report Type: Spontaneous
  Country: US (occurrence: US)
  Receive Date: 20170224
  Receipt Date: 20170224
  Transmission Date: 20170428
  Serious: No
  Sender: FDA-Public Use
  Company Number: US-JNJFOC-20170215815

PATIENT
  Age: 22 Year
  Sex: Female

DRUGS (13)
  1. BENADRYL [Concomitant]
     Active Substance: DIPHENHYDRAMINE HYDROCHLORIDE
     Indication: CHEST DISCOMFORT
     Route: 042
     Dates: start: 20170210
  2. SOLU-CORTEF [Concomitant]
     Active Substance: HYDROCORTISONE SODIUM SUCCINATE
     Indication: FLUSHING
     Route: 065
     Dates: start: 20170210
  3. SOLU-CORTEF [Concomitant]
     Active Substance: HYDROCORTISONE SODIUM SUCCINATE
     Indication: TACHYCARDIA
     Route: 065
     Dates: start: 20170210
  4. PEPCID [Suspect]
     Active Substance: FAMOTIDINE
     Indication: TACHYCARDIA
     Route: 065
     Dates: start: 20170210
  5. PEPCID [Suspect]
     Active Substance: FAMOTIDINE
     Indication: CHEST DISCOMFORT
     Route: 065
     Dates: start: 20170210
  6. SOLU-CORTEF [Concomitant]
     Active Substance: HYDROCORTISONE SODIUM SUCCINATE
     Indication: CHEST DISCOMFORT
     Route: 065
     Dates: start: 20170210
  7. SOLU-MEDROL [Concomitant]
     Active Substance: METHYLPREDNISOLONE SODIUM SUCCINATE
     Indication: TACHYCARDIA
     Route: 065
     Dates: start: 20170210
  8. PEPCID [Suspect]
     Active Substance: FAMOTIDINE
     Indication: FLUSHING
     Route: 065
     Dates: start: 20170210
  9. STELARA [Concomitant]
     Active Substance: USTEKINUMAB
     Indication: CROHN^S DISEASE
     Route: 042
     Dates: start: 20170210, end: 20170210
  10. BENADRYL [Concomitant]
     Active Substance: DIPHENHYDRAMINE HYDROCHLORIDE
     Indication: FLUSHING
     Route: 042
     Dates: start: 20170210
  11. SOLU-MEDROL [Concomitant]
     Active Substance: METHYLPREDNISOLONE SODIUM SUCCINATE
     Indication: CHEST DISCOMFORT
     Route: 065
     Dates: start: 20170210
  12. BENADRYL [Concomitant]
     Active Substance: DIPHENHYDRAMINE HYDROCHLORIDE
     Indication: TACHYCARDIA
     Route: 042
     Dates: start: 20170210
  13. SOLU-MEDROL [Concomitant]
     Active Substance: METHYLPREDNISOLONE SODIUM SUCCINATE
     Indication: FLUSHING
     Route: 065
     Dates: start: 20170210

REACTIONS (2)
  - Off label use [Unknown]
  - Product use issue [Unknown]
